FAERS Safety Report 6703056-6 (Version None)
Quarter: 2010Q2

REPORT INFORMATION
  Report Type: 
  Country: None (occurrence: None)
  Receive Date: 20100428
  Receipt Date: 20100416
  Transmission Date: 20101027
  Serious: Yes (Hospitalization)
  Sender: FDA-Public Use
  Company Number: AU-001873

PATIENT
  Sex: Female

DRUGS (6)
  1. MINIRIN [Suspect]
     Indication: DIABETES INSIPIDUS
     Dosage: 20 UG NASAL
     Route: 045
     Dates: start: 20090701, end: 20100301
  2. MINIRIN [Suspect]
     Indication: DIABETES INSIPIDUS
     Dosage: 20 UG NASAL
     Route: 045
     Dates: start: 20100322, end: 20100301
  3. CORTATE [Concomitant]
  4. LEVOTHYROXINE SODIUM [Concomitant]
  5. CLIMARA [Concomitant]
  6. MINIRIN [Suspect]

REACTIONS (10)
  - AGITATION [None]
  - CEREBRAL SALT-WASTING SYNDROME [None]
  - DIARRHOEA [None]
  - DRUG INEFFECTIVE [None]
  - HYPONATRAEMIA [None]
  - MALAISE [None]
  - MYALGIA [None]
  - OROPHARYNGEAL PAIN [None]
  - PAIN [None]
  - VOMITING [None]
